FAERS Safety Report 7590342-3 (Version None)
Quarter: 2011Q3

REPORT INFORMATION
  Report Type: 
  Country: None (occurrence: None)
  Receive Date: 20110705
  Receipt Date: 20110622
  Transmission Date: 20111222
  Serious: Yes (Other)
  Sender: FDA-Public Use
  Company Number: US-JNJFOC-20110409676

PATIENT
  Sex: Male

DRUGS (8)
  1. REMICADE [Suspect]
     Route: 042
     Dates: start: 20110101
  2. REMICADE [Suspect]
     Route: 042
     Dates: start: 20110301, end: 20110301
  3. ASPIRIN [Concomitant]
  4. IMURAN [Concomitant]
  5. ZESTORETIC [Concomitant]
     Dosage: 40/25 MG DAILY
  6. LIALDA [Concomitant]
  7. ASCORBIC ACID [Concomitant]
  8. REMICADE [Suspect]
     Indication: COLITIS ULCERATIVE
     Route: 042

REACTIONS (14)
  - FATIGUE [None]
  - CARDIAC FAILURE CONGESTIVE [None]
  - CHEST PAIN [None]
  - OXYGEN SATURATION DECREASED [None]
  - THROAT IRRITATION [None]
  - CARDIAC ENZYMES INCREASED [None]
  - PRURITUS [None]
  - ABDOMINAL PAIN UPPER [None]
  - ANAPHYLACTIC REACTION [None]
  - URTICARIA [None]
  - BLINDNESS [None]
  - CARDIAC MURMUR [None]
  - INFUSION RELATED REACTION [None]
  - WHEEZING [None]
